FAERS Safety Report 4413150-0 (Version None)
Quarter: 2004Q3

REPORT INFORMATION
  Report Type: 
  Country: None (occurrence: None)
  Receive Date: 20040802
  Receipt Date: 20040727
  Transmission Date: 20050211
  Serious: Yes (Other)
  Sender: FDA-Public Use
  Company Number: PHBS2004JP10013

PATIENT

DRUGS (1)
  1. TOFRANIL [Suspect]
     Dosage: 25 MG, TID
     Route: 048

REACTIONS (2)
  - BRADYCARDIA [None]
  - DIZZINESS POSTURAL [None]
